FAERS Safety Report 4345188-6 (Version None)
Quarter: 2004Q2

REPORT INFORMATION
  Report Type: 
  Country: None (occurrence: None)
  Receive Date: 20040420
  Receipt Date: 20040412
  Transmission Date: 20050107
  Serious: Yes (Hospitalization, Other)
  Sender: FDA-Public Use
  Company Number: US-SHR-04-019598

PATIENT
  Age: 46 Year
  Sex: Female

DRUGS (2)
  1. QUINAGLUTE [Suspect]
     Indication: ATRIAL TACHYCARDIA
     Dosage: ORAL
     Route: 048
     Dates: start: 19850201, end: 19870803
  2. LANOXIN [Concomitant]

REACTIONS (13)
  - ARTHRALGIA [None]
  - ARTHRITIS [None]
  - CHRONIC FATIGUE SYNDROME [None]
  - DEPRESSION [None]
  - INSOMNIA [None]
  - LUPUS-LIKE SYNDROME [None]
  - OESOPHAGITIS [None]
  - OSTEOMYELITIS [None]
  - PAIN IN EXTREMITY [None]
  - PRURITUS [None]
  - PSORIASIS [None]
  - RASH [None]
  - URTICARIA [None]
